FAERS Safety Report 24615005 (Version 1)
Quarter: 2024Q4

REPORT INFORMATION
  Report Type: Report from Study
  Country: US (occurrence: US)
  Receive Date: 20241113
  Receipt Date: 20241113
  Transmission Date: 20250115
  Serious: No
  Sender: INCYTE
  Company Number: US-INCYTE CORPORATION-2024IN011448

PATIENT

DRUGS (1)
  1. JAKAFI [Suspect]
     Active Substance: RUXOLITINIB
     Indication: Myelofibrosis
     Dosage: 5 MILLIGRAM, Q M-W-F MORNING
     Route: 048
     Dates: start: 20240927, end: 20241004

REACTIONS (5)
  - Vomiting [Unknown]
  - Confusional state [Unknown]
  - Amnesia [Unknown]
  - Nausea [Unknown]
  - Headache [Unknown]
